FAERS Safety Report 8425913-5 (Version None)
Quarter: 2012Q2

REPORT INFORMATION
  Report Type: 
  Country: None (occurrence: None)
  Receive Date: 20120611
  Receipt Date: 20120531
  Transmission Date: 20120825
  Serious: Yes (Hospitalization, Other)
  Sender: FDA-Public Use
  Company Number: CN-NOVOPROD-352916

PATIENT
  Age: 49 Year
  Sex: Male
  Weight: 90 kg

DRUGS (6)
  1. VICTOZA [Suspect]
     Dosage: 1.2 MG IN THE MORNING
     Route: 058
     Dates: end: 20120528
  2. REPAGLINIDE [Suspect]
     Indication: TYPE 2 DIABETES MELLITUS
     Dosage: UNK
     Route: 048
  3. REPAGLINIDE [Suspect]
     Dosage: 2 MG, QD
     Route: 065
     Dates: start: 20120528, end: 20120528
  4. VICTOZA [Suspect]
     Indication: TYPE 2 DIABETES MELLITUS
     Dosage: 1.2 MG IN THE MORNING
     Route: 058
  5. VICTOZA [Suspect]
     Dosage: 0.6 MG, TID
     Route: 058
     Dates: start: 20120529, end: 20120530
  6. GLIMEPIRIDE [Concomitant]
     Indication: PRODUCT USED FOR UNKNOWN INDICATION
     Dosage: 2 MG, QD
     Route: 048
     Dates: start: 20120507, end: 20120530

REACTIONS (3)
  - BLOOD GLUCOSE INCREASED [None]
  - PRODUCT COUNTERFEIT [None]
  - INAPPROPRIATE SCHEDULE OF DRUG ADMINISTRATION [None]
